FAERS Safety Report 12862065 (Version 1)
Quarter: 2016Q4

REPORT INFORMATION
  Report Type: Spontaneous
  Country: GR (occurrence: GR)
  Receive Date: 20161019
  Receipt Date: 20161019
  Transmission Date: 20170207
  Serious: Yes (Other)
  Sender: FDA-Public Use
  Company Number: GR-CELGENEUS-GRC-2016102183

PATIENT

DRUGS (1)
  1. ABRAXANE [Suspect]
     Active Substance: PACLITAXEL
     Indication: GASTRIC CANCER
     Route: 041

REACTIONS (5)
  - Adverse event [Unknown]
  - Neutropenia [Unknown]
  - Neurotoxicity [Unknown]
  - Asthenia [Unknown]
  - Gastric cancer [Unknown]
